FAERS Safety Report 8246099-6 (Version None)
Quarter: 2012Q1

REPORT INFORMATION
  Report Type: 
  Country: None (occurrence: None)
  Receive Date: 20120328
  Receipt Date: 20120328
  Transmission Date: 20120608
  Serious: Yes (Other)
  Sender: FDA-Public Use
  Company Number: None

PATIENT
  Age: 49 Year
  Sex: Male
  Weight: 86.1834 kg

DRUGS (3)
  1. SAPHRIS [Suspect]
     Indication: DEPRESSION
     Dosage: 5 MG DAILY MOUTH
     Route: 048
     Dates: start: 20120219
  2. SAPHRIS [Suspect]
     Indication: DEPRESSION
     Dosage: 5 MG DAILY MOUTH
     Route: 048
     Dates: start: 20120217
  3. SAPHRIS [Suspect]
     Indication: DEPRESSION
     Dosage: 5 MG DAILY MOUTH
     Route: 048
     Dates: start: 20120218

REACTIONS (8)
  - PANIC DISORDER [None]
  - FEELING HOT [None]
  - IRRITABILITY [None]
  - THOUGHT BLOCKING [None]
  - FEELING COLD [None]
  - HEADACHE [None]
  - SPEECH DISORDER [None]
  - CONFUSIONAL STATE [None]
